FAERS Safety Report 13696064 (Version 2)
Quarter: 2017Q3

REPORT INFORMATION
  Report Type: Spontaneous
  Country: NL (occurrence: NL)
  Receive Date: 20170628
  Receipt Date: 20170803
  Transmission Date: 20171127
  Serious: Yes (Life-Threatening, Hospitalization, Congenital Anomaly, Other)
  Sender: FDA-Public Use
  Company Number: NL-SUN PHARMACEUTICAL INDUSTRIES LTD-2017R1-143886

PATIENT
  Sex: Male
  Weight: 3.1 kg

DRUGS (3)
  1. FOLIC ACID. [Concomitant]
     Active Substance: FOLIC ACID
     Indication: PRODUCT USED FOR UNKNOWN INDICATION
     Dosage: 5 MG, DAILY
     Route: 064
  2. PHYTOMENADIONE [Concomitant]
     Active Substance: PHYTONADIONE
     Indication: PRODUCT USED FOR UNKNOWN INDICATION
     Dosage: 10 MG, DAILY
     Route: 065
  3. VALPROIC ACID. [Suspect]
     Active Substance: VALPROIC ACID
     Indication: JUVENILE MYOCLONIC EPILEPSY
     Dosage: 1000 MG, BID
     Route: 064

REACTIONS (22)
  - Foetal anticonvulsant syndrome [Unknown]
  - Cryptorchism [Unknown]
  - Hypoglycaemia [Recovered/Resolved]
  - Tremor [Recovered/Resolved]
  - Foetal exposure during pregnancy [Unknown]
  - Poor feeding infant [Unknown]
  - Drug level increased [Unknown]
  - Hypospadias [Unknown]
  - Plagiocephaly [Unknown]
  - Bradycardia [Recovered/Resolved]
  - High arched palate [Unknown]
  - Syndactyly [Unknown]
  - Strabismus [Unknown]
  - Drug withdrawal syndrome [Recovered/Resolved]
  - Oxygen saturation decreased [Recovered/Resolved]
  - Premature closure of cranial sutures [Unknown]
  - Multiple congenital abnormalities [Unknown]
  - Congenital hand malformation [Unknown]
  - Foot deformity [Unknown]
  - Apnoea [Recovered/Resolved]
  - Nipple disorder [Unknown]
  - Dysmorphism [Unknown]
